FAERS Safety Report 8300105-9 (Version None)
Quarter: 2012Q2

REPORT INFORMATION
  Report Type: 
  Country: None (occurrence: None)
  Receive Date: 20120420
  Receipt Date: 20120417
  Transmission Date: 20120825
  Serious: Yes (Other)
  Sender: FDA-Public Use
  Company Number: US-PFIZER INC-2012077637

PATIENT
  Sex: Female

DRUGS (1)
  1. LYRICA [Suspect]
     Dosage: UNK, 1X/DAY

REACTIONS (5)
  - OEDEMA PERIPHERAL [None]
  - SWOLLEN TONGUE [None]
  - LIP SWELLING [None]
  - SWELLING FACE [None]
  - DYSPNOEA [None]
